FAERS Safety Report 6618507-5 (Version None)
Quarter: 2010Q1

REPORT INFORMATION
  Report Type: 
  Country: None (occurrence: None)
  Receive Date: 20100308
  Receipt Date: 20100225
  Transmission Date: 20100710
  Serious: Yes (Hospitalization)
  Sender: FDA-Public Use
  Company Number: US-ELI_LILLY_AND_COMPANY-US201002007273

PATIENT
  Sex: Female
  Weight: 85.714 kg

DRUGS (9)
  1. BYETTA [Suspect]
     Indication: TYPE 2 DIABETES MELLITUS
     Dosage: 10 UG, 2/D
     Route: 058
  2. TRILIPIX [Concomitant]
     Dosage: UNK, UNKNOWN
     Route: 048
  3. ATENOLOL [Concomitant]
     Dosage: UNK, UNKNOWN
     Route: 048
  4. LISINOPRIL [Concomitant]
     Dosage: UNK, UNKNOWN
     Route: 048
  5. DOXEPIN HCL [Concomitant]
     Dosage: UNK, UNKNOWN
     Route: 048
  6. LYRICA [Concomitant]
     Dosage: UNK, UNKNOWN
     Route: 048
  7. XANAX [Concomitant]
     Dosage: UNK, UNKNOWN
     Route: 048
  8. MORPHINE [Concomitant]
     Dosage: UNK, UNKNOWN
     Route: 048
     Dates: start: 20090201
  9. NOVOLOG [Concomitant]
     Dosage: UNK, UNKNOWN
     Route: 058

REACTIONS (2)
  - OFF LABEL USE [None]
  - PANCREATITIS [None]
